FAERS Safety Report 7544427-8 (Version None)
Quarter: 2011Q2

REPORT INFORMATION
  Report Type: 
  Country: None (occurrence: None)
  Receive Date: 20110613
  Receipt Date: 20090217
  Transmission Date: 20111010
  Serious: Yes (Death, Hospitalization)
  Sender: FDA-Public Use
  Company Number: PHHY2009US03245

PATIENT
  Sex: Female

DRUGS (12)
  1. XANAX [Concomitant]
  2. CENTRUM SILVER [Concomitant]
     Dosage: 1 DF, QD
     Route: 048
  3. OXYGEN [Concomitant]
  4. REVLIMID [Concomitant]
     Indication: MYELODYSPLASTIC SYNDROME
     Dosage: UNK
     Dates: start: 20080701
  5. ARANESP [Concomitant]
     Indication: MYELODYSPLASTIC SYNDROME
     Dosage: 400 MCG Q2W
     Dates: start: 20060728
  6. VITAMIN D [Concomitant]
  7. EXJADE [Suspect]
     Dosage: 1000 MG, QD
     Route: 048
     Dates: start: 20081215, end: 20090116
  8. FOSAMAX [Concomitant]
     Dosage: 1 DF, UNK
     Route: 048
  9. CEPHALEXIN [Concomitant]
     Dosage: 10 ML, QID
  10. CALCIUM CARBONATE W/VITAMIN D NOS [Concomitant]
     Dosage: 200 MG, BID
     Route: 048
  11. MEGACE [Concomitant]
     Dosage: 20 ML, QD
     Route: 048
  12. ANTIBIOTICS [Concomitant]

REACTIONS (5)
  - DISEASE PROGRESSION [None]
  - SEPSIS [None]
  - URINARY TRACT INFECTION [None]
  - STAPHYLOCOCCAL BACTERAEMIA [None]
  - MALNUTRITION [None]
